FAERS Safety Report 12014917 (Version 1)
Quarter: 2016Q1

REPORT INFORMATION
  Report Type: Spontaneous
  Country: US (occurrence: US)
  Receive Date: 20160205
  Receipt Date: 20160205
  Transmission Date: 20160526
  Serious: No
  Sender: FDA-Public Use
  Company Number: US-AMGEN-USASP2015014797

PATIENT
  Sex: Female

DRUGS (5)
  1. CYTOXAN [Concomitant]
     Active Substance: CYCLOPHOSPHAMIDE
     Indication: INVASIVE LOBULAR BREAST CARCINOMA
     Dosage: UNK
     Dates: start: 20140603
  2. DECADRON [Concomitant]
     Active Substance: DEXAMETHASONE
     Dosage: UNK
  3. NEULASTA [Suspect]
     Active Substance: PEGFILGRASTIM
     Indication: PRODUCT USED FOR UNKNOWN INDICATION
     Dosage: UNK
     Route: 065
  4. TAXOL [Concomitant]
     Active Substance: PACLITAXEL
     Indication: INVASIVE LOBULAR BREAST CARCINOMA
     Dosage: UNK
     Dates: start: 20140603
  5. ADRIAMYCIN [Concomitant]
     Active Substance: DOXORUBICIN HYDROCHLORIDE
     Indication: INVASIVE LOBULAR BREAST CARCINOMA
     Dosage: UNK
     Dates: start: 20140603

REACTIONS (1)
  - Insomnia [Unknown]
